FAERS Safety Report 5147842-5 (Version None)
Quarter: 2006Q4

REPORT INFORMATION
  Report Type: 
  Country: None (occurrence: None)
  Receive Date: 20060914
  Receipt Date: 20060517
  Transmission Date: 20070319
  Serious: Yes (Hospitalization)
  Sender: FDA-Public Use
  Company Number: 1-13873619

PATIENT
  Age: 22 Year
  Sex: Female

DRUGS (4)
  1. SULFAMETHOXAZOLE AND TRIMETHOPRIM [Suspect]
     Indication: GASTROENTERITIS
     Dosage: ONE TABLET , TWICE DAILY, ORAL
     Route: 048
     Dates: start: 20060514, end: 20060515
  2. SULFAMETHOXAZOLE AND TRIMETHOPRIM [Suspect]
     Indication: URINARY TRACT INFECTION
     Dosage: ONE TABLET , TWICE DAILY, ORAL
     Route: 048
     Dates: start: 20060514, end: 20060515
  3. COMPAZINE [Concomitant]
  4. YASMIN [Concomitant]

REACTIONS (5)
  - BLOOD PRESSURE DECREASED [None]
  - CONVULSION [None]
  - DECREASED APPETITE [None]
  - DEHYDRATION [None]
  - ELECTROENCEPHALOGRAM ABNORMAL [None]
